FAERS Safety Report 6712680-6 (Version None)
Quarter: 2010Q2

REPORT INFORMATION
  Report Type: 
  Country: None (occurrence: None)
  Receive Date: 20100505
  Receipt Date: 20100505
  Transmission Date: 20101027
  Serious: Yes (Other)
  Sender: FDA-Public Use
  Company Number: None

PATIENT
  Sex: Female
  Weight: 50.8029 kg

DRUGS (1)
  1. LEVAQUIN [Suspect]
     Indication: SINUSITIS
     Dosage: ONE TABLET DAILY

REACTIONS (7)
  - DEPRESSION [None]
  - FEELING ABNORMAL [None]
  - HEADACHE [None]
  - INSOMNIA [None]
  - NAUSEA [None]
  - NERVOUSNESS [None]
  - RESTLESS LEGS SYNDROME [None]
